FAERS Safety Report 24365694 (Version 1)
Quarter: 2024Q3

REPORT INFORMATION
  Report Type: Spontaneous
  Country: JP (occurrence: JP)
  Receive Date: 20240926
  Receipt Date: 20240926
  Transmission Date: 20241017
  Serious: Yes (Death, Hospitalization)
  Sender: MYLAN
  Company Number: JP-MYLANLABS-2024M1086429

PATIENT
  Age: 85 Year
  Sex: Female

DRUGS (9)
  1. VANCOMYCIN [Suspect]
     Active Substance: VANCOMYCIN
     Indication: Corynebacterium infection
     Route: 065
  2. VANCOMYCIN [Suspect]
     Active Substance: VANCOMYCIN
     Indication: Endocarditis bacterial
  3. VANCOMYCIN [Suspect]
     Active Substance: VANCOMYCIN
     Indication: Arthritis bacterial
  4. AMPICILLIN [Suspect]
     Active Substance: AMPICILLIN
     Indication: Corynebacterium infection
     Route: 065
  5. AMPICILLIN [Suspect]
     Active Substance: AMPICILLIN
     Indication: Endocarditis bacterial
  6. AMPICILLIN [Suspect]
     Active Substance: AMPICILLIN
     Indication: Arthritis bacterial
  7. LEVOTHYROXINE [Concomitant]
     Active Substance: LEVOTHYROXINE\LEVOTHYROXINE SODIUM
     Indication: Hypothyroidism
     Route: 065
  8. ELDECALCITOL [Concomitant]
     Active Substance: ELDECALCITOL
     Indication: Product used for unknown indication
     Route: 065
  9. IBANDRONATE SODIUM [Concomitant]
     Active Substance: IBANDRONATE SODIUM
     Indication: Product used for unknown indication
     Route: 065

REACTIONS (1)
  - Treatment failure [Fatal]
